FAERS Safety Report 24694717 (Version 1)
Quarter: 2024Q4

REPORT INFORMATION
  Report Type: Spontaneous
  Country: NL (occurrence: NL)
  Receive Date: 20241204
  Receipt Date: 20241204
  Transmission Date: 20250114
  Serious: Yes (Other)
  Sender: AMGEN
  Company Number: None

PATIENT
  Age: 67 Year
  Sex: Female
  Weight: 70 kg

DRUGS (1)
  1. PROLIA [Suspect]
     Active Substance: DENOSUMAB
     Indication: Osteoporosis
     Dosage: UNK (1X PER 1/2 YEAR)
     Route: 065
     Dates: start: 20230615, end: 20241119

REACTIONS (2)
  - Osteonecrosis [Not Recovered/Not Resolved]
  - Ear inflammation [Not Recovered/Not Resolved]
